FAERS Safety Report 11885600 (Version 1)
Quarter: 2016Q1

REPORT INFORMATION
  Report Type: Spontaneous
  Country: FR (occurrence: FR)
  Receive Date: 20160104
  Receipt Date: 20160104
  Transmission Date: 20160526
  Serious: Yes (Hospitalization, Other)
  Sender: FDA-Public Use
  Company Number: FR-PFIZER INC-2015474985

PATIENT
  Age: 88 Year
  Sex: Male

DRUGS (8)
  1. SPIRONOLACTONE. [Concomitant]
     Active Substance: SPIRONOLACTONE
     Dosage: 50 (UNSPECIFIED UNIT), 1X/DAY
  2. CELEBREX [Suspect]
     Active Substance: CELECOXIB
     Dosage: 200 MG, 1X/DAY
     Route: 048
     Dates: start: 20151125, end: 20151128
  3. BISOCE [Concomitant]
     Active Substance: BISOPROLOL
     Dosage: 2.5 (UNSPECIFIED UNIT), 1X/DAY
  4. BIATAIN DRESSING [Concomitant]
     Dosage: UNK
     Dates: start: 20151127
  5. KARDEGIC [Concomitant]
     Active Substance: ASPIRIN LYSINE
     Dosage: UNK, 1X/DAY
  6. FUROSEMIDE. [Concomitant]
     Active Substance: FUROSEMIDE
     Dosage: 20 (UNSPECIFIED UNIT), 1X/DAY
  7. INEXIUM 40 [Concomitant]
     Dosage: UNK, 1X/DAY
  8. DOLIPRANE 1000 [Concomitant]
     Dosage: UNK, 2X/DAY

REACTIONS (3)
  - Hypersensitivity vasculitis [Recovering/Resolving]
  - Renal impairment [Recovering/Resolving]
  - Vascular purpura [Recovering/Resolving]

NARRATIVE: CASE EVENT DATE: 20151126
